FAERS Safety Report 9062004 (Version 1)
Quarter: 2013Q1

REPORT INFORMATION
  Report Type: Spontaneous
  Country: BR (occurrence: None)
  Receive Date: 20130122
  Receipt Date: 20130122
  Transmission Date: 20140127
  Serious: Yes (Other)
  Sender: FDA-Public Use
  Company Number: ENT 2013-0007

PATIENT
  Age: 76 Year
  Sex: Female
  Weight: 70 kg

DRUGS (4)
  1. COMTAN (ENTACAPONE) [Suspect]
     Indication: PARKINSON^S DISEASE
     Dosage: 4 DF DAILY; STRENGTH 200 MG ORAL
     Route: 048
  2. PROLOPA [Concomitant]
  3. VENLIFT [Concomitant]
  4. LEPONEX [Concomitant]

REACTIONS (3)
  - Intentional overdose [None]
  - Panic attack [None]
  - Parkinson^s disease [None]
